FAERS Safety Report 12915470 (Version 1)
Quarter: 2016Q4

REPORT INFORMATION
  Report Type: Spontaneous
  Country: US (occurrence: US)
  Receive Date: 20161106
  Receipt Date: 20161106
  Transmission Date: 20170207
  Serious: No
  Sender: FDA-Public Use
  Company Number: US-RELYPSA-RLY2016002971

PATIENT
  Sex: Female

DRUGS (2)
  1. NITRO                              /00003201/ [Concomitant]
     Active Substance: NITROGLYCERIN
  2. VELTASSA [Suspect]
     Active Substance: PATIROMER
     Indication: BLOOD POTASSIUM INCREASED
     Dosage: UNK, QD
     Route: 048
     Dates: start: 201609

REACTIONS (2)
  - Chest pain [Not Recovered/Not Resolved]
  - Inappropriate schedule of drug administration [Not Recovered/Not Resolved]

NARRATIVE: CASE EVENT DATE: 2016
